FAERS Safety Report 8862746 (Version 1)
Quarter: 2012Q4

REPORT INFORMATION
  Report Type: 
  Country: CO (occurrence: CO)
  Receive Date: 20121026
  Receipt Date: 20121026
  Transmission Date: 20130627
  Serious: Yes (Life-Threatening)
  Sender: FDA-Public Use
  Company Number: CO-SANOFI-AVENTIS-2012SA077738

PATIENT
  Age: 48 Year
  Sex: Female

DRUGS (4)
  1. LANTUS [Suspect]
     Indication: TYPE II DIABETES MELLITUS
     Dosage: Dose:34 unit(s)
     Route: 058
     Dates: start: 2007
  2. METFORMIN [Concomitant]
     Indication: TYPE 2 DIABETES MELLITUS
     Route: 048
  3. LEVOTHYROXINE [Concomitant]
     Indication: SECONDARY HYPOTHYROIDISM
     Route: 048
  4. CALCIUM [Concomitant]
     Route: 065

REACTIONS (1)
  - Thyroid cancer [Unknown]
